FAERS Safety Report 8352443-1 (Version None)
Quarter: 2012Q2

REPORT INFORMATION
  Report Type: 
  Country: None (occurrence: None)
  Receive Date: 20120511
  Receipt Date: 20120502
  Transmission Date: 20120825
  Serious: Yes (Hospitalization, Other)
  Sender: FDA-Public Use
  Company Number: FR-MILLENNIUM PHARMACEUTICALS, INC.-2012-03102

PATIENT

DRUGS (12)
  1. DEXAMETHASONE [Concomitant]
     Dosage: UNK
     Dates: start: 20120217
  2. VELCADE [Suspect]
     Indication: MULTIPLE MYELOMA
     Dosage: UNK
     Route: 065
     Dates: start: 20110906, end: 20120203
  3. ZELITREX                           /01269701/ [Concomitant]
     Dosage: UNK
     Dates: start: 20110906
  4. ATENOLOL [Concomitant]
     Dosage: UNK
     Dates: start: 20111014
  5. DILTIAZEM HCL [Concomitant]
     Dosage: UNK
     Dates: start: 20111014
  6. REVLIMID [Concomitant]
     Indication: MULTIPLE MYELOMA
     Dosage: UNK
     Dates: start: 20120217
  7. KARDEGIC                           /00002703/ [Concomitant]
  8. FUROSEMIDE [Concomitant]
     Dosage: UNK
     Dates: start: 20111014
  9. PERINDOPRIL ERBUMINE [Concomitant]
     Dosage: UNK
     Dates: start: 20111014
  10. ATORVASTATIN [Concomitant]
     Dosage: UNK
     Dates: start: 20111014
  11. DEXAMETHASONE [Concomitant]
     Indication: MULTIPLE MYELOMA
     Dosage: UNK
     Dates: start: 20110906, end: 20120203
  12. STILNOX                            /00914901/ [Concomitant]
     Dosage: UNK
     Dates: start: 20111014

REACTIONS (1)
  - PALPITATIONS [None]
